FAERS Safety Report 9259623 (Version 1)
Quarter: 2013Q2

REPORT INFORMATION
  Report Type: Spontaneous
  Country: FI (occurrence: FI)
  Receive Date: 20130429
  Receipt Date: 20130429
  Transmission Date: 20140414
  Serious: Yes (Hospitalization)
  Sender: FDA-Public Use
  Company Number: FI-UCBSA-072203

PATIENT
  Sex: Female

DRUGS (6)
  1. CIMZIA [Suspect]
     Indication: RHEUMATOID ARTHRITIS
     Dates: start: 2013, end: 20130313
  2. CIMZIA [Suspect]
     Indication: RHEUMATOID ARTHRITIS
     Dosage: UNKNOWN
     Dates: end: 20130126
  3. PREDNISOLON [Concomitant]
     Dosage: STRENGTH: 15MG
  4. VIMOVO [Concomitant]
     Indication: ANALGESIC THERAPY
     Dosage: AS NEEDED
  5. ARCOXIA [Concomitant]
     Indication: SINUSITIS
     Dosage: STRENGTH: 90 MG
  6. AVAMYS [Concomitant]
     Dosage: 27.5 MG
     Route: 045
     Dates: start: 201211

REACTIONS (12)
  - Pyoderma gangrenosum [Unknown]
  - Rectal haemorrhage [Unknown]
  - Rectal discharge [Unknown]
  - Sinusitis [Unknown]
  - Pain in extremity [Recovering/Resolving]
  - Local swelling [Recovering/Resolving]
  - Dry skin [Unknown]
  - Skin exfoliation [Unknown]
  - Skin discolouration [Unknown]
  - Pyrexia [Unknown]
  - Purulent discharge [Not Recovered/Not Resolved]
  - Oedema mucosal [Unknown]
